FAERS Safety Report 12382491 (Version 1)
Quarter: 2016Q2

REPORT INFORMATION
  Report Type: Report from Study
  Country: US (occurrence: US)
  Receive Date: 20160518
  Receipt Date: 20160518
  Transmission Date: 20160815
  Serious: No
  Sender: FDA-Public Use
  Company Number: US-MALLINCKRODT-T201503031

PATIENT
  Age: 54 Year
  Sex: Female

DRUGS (1)
  1. REPOSITORY CORTICOTROPIN INJECTION [Suspect]
     Active Substance: CORTICOTROPIN
     Indication: SARCOIDOSIS
     Dosage: 80 UNITS Q 72 HOURS
     Route: 030
     Dates: start: 20150610

REACTIONS (5)
  - Rash [Unknown]
  - Insomnia [Unknown]
  - Muscle twitching [Unknown]
  - Sleep disorder [Unknown]
  - Cough [Unknown]

NARRATIVE: CASE EVENT DATE: 201506
